FAERS Safety Report 5850502-6 (Version None)
Quarter: 2008Q3

REPORT INFORMATION
  Report Type: 
  Country: None (occurrence: None)
  Receive Date: 20080819
  Receipt Date: 20080807
  Transmission Date: 20090109
  Serious: Yes (Other)
  Sender: FDA-Public Use
  Company Number: US-PFIZER INC-2008066720

PATIENT
  Sex: Female
  Weight: 90.909 kg

DRUGS (7)
  1. LYRICA [Suspect]
     Indication: DIABETIC NEUROPATHY
  2. NEURONTIN [Suspect]
     Indication: DIABETIC NEUROPATHY
  3. GABAPENTIN [Suspect]
     Indication: DIABETIC NEUROPATHY
  4. ZOLOFT [Concomitant]
  5. PREDNISONE TAB [Concomitant]
  6. GUAIFENESIN [Concomitant]
  7. GLUCOPHAGE [Concomitant]

REACTIONS (2)
  - ABASIA [None]
  - DIABETIC NEUROPATHY [None]
